FAERS Safety Report 6028564-5 (Version None)
Quarter: 2009Q1

REPORT INFORMATION
  Report Type: 
  Country: None (occurrence: None)
  Receive Date: 20090106
  Receipt Date: 20081231
  Transmission Date: 20090719
  Serious: Yes (Hospitalization, Other)
  Sender: FDA-Public Use
  Company Number: US-ELI_LILLY_AND_COMPANY-US200812006186

PATIENT
  Sex: Female

DRUGS (1)
  1. HUMALOG MIX 75/25 [Suspect]

REACTIONS (4)
  - EMBOLISM [None]
  - SKIN DISORDER [None]
  - SKIN NECROSIS [None]
  - STENT OCCLUSION [None]
